FAERS Safety Report 8074378-4 (Version None)
Quarter: 2012Q1

REPORT INFORMATION
  Report Type: 
  Country: None (occurrence: None)
  Receive Date: 20120126
  Receipt Date: 20120123
  Transmission Date: 20120608
  Serious: Yes (Other)
  Sender: FDA-Public Use
  Company Number: US-GLAXOSMITHKLINE-A0960789A

PATIENT
  Age: 58 Year
  Sex: Male

DRUGS (6)
  1. PLAVIX [Concomitant]
  2. PRAVASTATIN [Concomitant]
  3. HIV TREATMENTS (UNSPECIFIED) [Concomitant]
  4. ALLERGY MEDICATION [Concomitant]
  5. METOPROLOL SUCCINATE EXTENDED RELEASE [Concomitant]
  6. LOVAZA [Suspect]
     Indication: BLOOD CHOLESTEROL INCREASED
     Dosage: 2CAP TWICE PER DAY
     Route: 048
     Dates: start: 20100201, end: 20120109

REACTIONS (5)
  - NASOPHARYNGITIS [None]
  - AGEUSIA [None]
  - PSEUDOMONAS INFECTION [None]
  - ANOSMIA [None]
  - TINNITUS [None]
